FAERS Safety Report 6375554-9 (Version None)
Quarter: 2009Q3

REPORT INFORMATION
  Report Type: 
  Country: None (occurrence: None)
  Receive Date: 20090924
  Receipt Date: 20090922
  Transmission Date: 20100115
  Serious: Yes (Life-Threatening, Hospitalization)
  Sender: FDA-Public Use
  Company Number: DE-BRISTOL-MYERS SQUIBB COMPANY-14731178

PATIENT
  Age: 69 Year
  Sex: Female
  Weight: 35 kg

DRUGS (3)
  1. CETUXIMAB [Suspect]
     Indication: GASTRIC CANCER
     Dosage: STRENGTH: 2MG/ML, MOST RECENT INFUSION ON 31-JUL-2009
     Route: 042
     Dates: start: 20090617, end: 20090731
  2. CISPLATIN [Suspect]
     Indication: GASTRIC CANCER
     Dosage: MOST RECENT INFUSION ON 31-JUL-2009
     Route: 042
     Dates: start: 20090617, end: 20090731
  3. TAXOTERE [Suspect]
     Indication: GASTRIC CANCER
     Dosage: MOST RECENT INFUSION ON 31-JUL-2009
     Route: 042
     Dates: start: 20090617, end: 20090731

REACTIONS (4)
  - ASTHENIA [None]
  - CACHEXIA [None]
  - LUNG ABSCESS [None]
  - PNEUMONIA [None]
